FAERS Safety Report 17686110 (Version 1)
Quarter: 2020Q2

REPORT INFORMATION
  Report Type: Report from Study
  Country: US (occurrence: US)
  Receive Date: 20200420
  Receipt Date: 20200420
  Transmission Date: 20200714
  Serious: Yes (Other)
  Sender: FDA-Public Use
  Company Number: US-INCYTE CORPORATION-2020IN002914

PATIENT

DRUGS (3)
  1. JAKAFI [Suspect]
     Active Substance: RUXOLITINIB
     Dosage: 25 MILLIGRAM
     Route: 048
  2. MARIJUANA [Suspect]
     Active Substance: CANNABIS SATIVA SUBSP. INDICA TOP
     Indication: PRODUCT USED FOR UNKNOWN INDICATION
     Route: 065
  3. JAKAFI [Suspect]
     Active Substance: RUXOLITINIB
     Indication: POLYCYTHAEMIA VERA
     Dosage: UNK
     Route: 048
     Dates: start: 201703

REACTIONS (11)
  - Polycythaemia vera [Unknown]
  - Blood disorder [Unknown]
  - Asthenia [Unknown]
  - Scar [Unknown]
  - Euphoric mood [Unknown]
  - Disease progression [Unknown]
  - Pain in extremity [Unknown]
  - Night sweats [Unknown]
  - Skin reaction [Unknown]
  - Hypobarism [Unknown]
  - Aquagenic pruritus [Unknown]
